FAERS Safety Report 20775228 (Version 4)
Quarter: 2022Q2

REPORT INFORMATION
  Report Type: Report from Study
  Country: US (occurrence: US)
  Receive Date: 20220502
  Receipt Date: 20220603
  Transmission Date: 20220721
  Serious: Yes (Hospitalization)
  Sender: FDA-Public Use
  Company Number: US-BAYER-2022A060051

PATIENT
  Age: 60 Year
  Sex: Male
  Weight: 92.971 kg

DRUGS (6)
  1. ADEMPAS [Suspect]
     Active Substance: RIOCIGUAT
     Indication: Pulmonary arterial hypertension
     Dosage: UNK
     Route: 048
     Dates: start: 20210318
  2. ADEMPAS [Suspect]
     Active Substance: RIOCIGUAT
     Indication: Pulmonary arterial hypertension
     Dosage: 2.5 MG, TID
     Route: 048
  3. ADEMPAS [Suspect]
     Active Substance: RIOCIGUAT
     Indication: Pulmonary arterial hypertension
     Dosage: 2.5 MG, TID
     Route: 048
  4. VELETRI [Concomitant]
     Active Substance: EPOPROSTENOL
     Dosage: UNK
  5. TYVASO [Concomitant]
     Active Substance: TREPROSTINIL
     Dosage: UNK
     Dates: end: 2022
  6. OPSUMIT [Concomitant]
     Active Substance: MACITENTAN
     Dosage: UNK

REACTIONS (6)
  - Vascular device infection [None]
  - Pneumonia [None]
  - Pain in jaw [Not Recovered/Not Resolved]
  - Nausea [Recovered/Resolved]
  - Medical device site rash [None]
  - Malaise [None]

NARRATIVE: CASE EVENT DATE: 20220412
